FAERS Safety Report 25465642 (Version 1)
Quarter: 2025Q2

REPORT INFORMATION
  Report Type: Spontaneous
  Country: US (occurrence: US)
  Receive Date: 20250623
  Receipt Date: 20250623
  Transmission Date: 20250717
  Serious: Yes (Other)
  Sender: JOHNSON AND JOHNSON
  Company Number: US-JNJFOC-20250620458

PATIENT

DRUGS (1)
  1. TALQUETAMAB [Suspect]
     Active Substance: TALQUETAMAB
     Indication: Product used for unknown indication
     Route: 065

REACTIONS (8)
  - Neuropathy peripheral [Unknown]
  - Viral infection [Recovering/Resolving]
  - Diplopia [Not Recovered/Not Resolved]
  - Taste disorder [Not Recovered/Not Resolved]
  - Hypophagia [Not Recovered/Not Resolved]
  - Fatigue [Not Recovered/Not Resolved]
  - Malaise [Not Recovered/Not Resolved]
  - Weight decreased [Not Recovered/Not Resolved]
